FAERS Safety Report 6816887-9 (Version None)
Quarter: 2010Q2

REPORT INFORMATION
  Report Type: 
  Country: None (occurrence: None)
  Receive Date: 20100630
  Receipt Date: 20100617
  Transmission Date: 20101027
  Serious: Yes (Hospitalization)
  Sender: FDA-Public Use
  Company Number: 2010MA000074

PATIENT
  Age: 85 Year
  Sex: Female

DRUGS (5)
  1. AMLODIPINE BESYLATE TABLETS 5 MG (ATLLC) (AMLODIPINE) [Suspect]
     Dosage: 5MG, PO
     Route: 048
     Dates: start: 20100524, end: 20100606
  2. SIMVASTATIN [Concomitant]
  3. OMEPRAZOLE [Concomitant]
  4. BENDROFLUMETHIAZIDE [Concomitant]
  5. PREV MEDS [Concomitant]

REACTIONS (3)
  - LOCAL SWELLING [None]
  - SWELLING FACE [None]
  - SWOLLEN TONGUE [None]
